FAERS Safety Report 6384545-3 (Version None)
Quarter: 2009Q3

REPORT INFORMATION
  Report Type: 
  Country: None (occurrence: None)
  Receive Date: 20090928
  Receipt Date: 20090916
  Transmission Date: 20100115
  Serious: Yes (Disabling)
  Sender: FDA-Public Use
  Company Number: GXKR2009FR10359

PATIENT
  Age: 51 Year
  Sex: Male

DRUGS (7)
  1. OFLOXACIN [Suspect]
     Indication: ORCHITIS
     Dosage: 200 MG, BID, ORAL ; 200 MG, BID, ORAL
     Route: 048
     Dates: start: 20090727, end: 20090806
  2. OFLOXACIN [Suspect]
     Indication: PROSTATITIS
     Dosage: 200 MG, BID, ORAL ; 200 MG, BID, ORAL
     Route: 048
     Dates: start: 20090727, end: 20090806
  3. OFLOXACIN [Suspect]
     Indication: ORCHITIS
     Dosage: 200 MG, BID, ORAL ; 200 MG, BID, ORAL
     Route: 048
     Dates: start: 20090817, end: 20090914
  4. OFLOXACIN [Suspect]
     Indication: PROSTATITIS
     Dosage: 200 MG, BID, ORAL ; 200 MG, BID, ORAL
     Route: 048
     Dates: start: 20090817, end: 20090914
  5. PROSCAR [Concomitant]
  6. EFFERALGAN CODEINE (CODEINE PHOSPHATE, PARACETAMOL) [Concomitant]
  7. LEVOTHYROXINE SODIUM [Concomitant]

REACTIONS (3)
  - BEDRIDDEN [None]
  - IMPAIRED WORK ABILITY [None]
  - ORCHITIS [None]
